FAERS Safety Report 15955171 (Version 4)
Quarter: 2019Q2

REPORT INFORMATION
  Report Type: Spontaneous
  Country: US (occurrence: US)
  Receive Date: 20190213
  Receipt Date: 20190625
  Transmission Date: 20190711
  Serious: No
  Sender: FDA-Public Use
  Company Number: US-PFIZER INC-2019062252

PATIENT
  Age: 37 Year
  Sex: Female

DRUGS (2)
  1. LYRICA [Suspect]
     Active Substance: PREGABALIN
     Indication: NEURALGIA
     Dosage: 25 MG, UNK
  2. LYRICA [Suspect]
     Active Substance: PREGABALIN
     Dosage: 125 MG, 2X/DAY (SHE WAS TAKING 50 MG IN MORNING, 75 MG HS (AT BEDTIME))
     Route: 048
     Dates: start: 201810

REACTIONS (4)
  - Swelling [Not Recovered/Not Resolved]
  - Vulval oedema [Not Recovered/Not Resolved]
  - Malaise [Not Recovered/Not Resolved]
  - Vulval neoplasm [Not Recovered/Not Resolved]

NARRATIVE: CASE EVENT DATE: 201901
